FAERS Safety Report 7469512-0 (Version None)
Quarter: 2011Q2

REPORT INFORMATION
  Report Type: 
  Country: None (occurrence: None)
  Receive Date: 20110429
  Receipt Date: 20110415
  Transmission Date: 20111010
  Serious: Yes (Death)
  Sender: FDA-Public Use
  Company Number: 1000020361

PATIENT
  Age: 74 Year
  Sex: Male

DRUGS (1)
  1. SAVELLA [Suspect]
     Dosage: ORAL
     Route: 048
     Dates: start: 20050301

REACTIONS (1)
  - NEUROLEPTIC MALIGNANT SYNDROME [None]
